FAERS Safety Report 14082980 (Version 1)
Quarter: 2017Q4

REPORT INFORMATION
  Report Type: Spontaneous
  Country: US (occurrence: US)
  Receive Date: 20171012
  Receipt Date: 20171012
  Transmission Date: 20180321
  Serious: No
  Sender: FDA-Public Use
  Company Number: US-009507513-1710USA001511

PATIENT
  Age: 61 Year
  Sex: Male

DRUGS (3)
  1. PEGINTERFERON ALFA-2A. [Suspect]
     Active Substance: PEGINTERFERON ALFA-2A
     Indication: HEPATITIS C
     Dosage: 180 UG WEEKLY
     Route: 058
     Dates: start: 20110317
  2. REBETOL [Suspect]
     Active Substance: RIBAVIRIN
     Indication: HEPATITIS C
     Dosage: DOSE OF 1200 MG IN DIVIDED DOSES DAILY
     Route: 048
     Dates: start: 20110317
  3. VICTRELIS [Suspect]
     Active Substance: BOCEPREVIR
     Indication: HEPATITIS C

REACTIONS (6)
  - Asthenia [Unknown]
  - Malaise [Unknown]
  - Nausea [Unknown]
  - Musculoskeletal discomfort [Unknown]
  - Blood glucose increased [Unknown]
  - Fatigue [Unknown]

NARRATIVE: CASE EVENT DATE: 20120125
